FAERS Safety Report 9709049 (Version 1)
Quarter: 2013Q4

REPORT INFORMATION
  Report Type: Report from Study
  Country: US (occurrence: US)
  Receive Date: 20131125
  Receipt Date: 20131125
  Transmission Date: 20140711
  Serious: Yes (Other)
  Sender: FDA-Public Use
  Company Number: US-MYLANLABS-2013S1025840

PATIENT
  Age: 3 Year
  Sex: Female

DRUGS (3)
  1. IRINOTECAN [Suspect]
     Indication: BRAIN STEM GLIOMA
     Dosage: 125 MG/M2 WEEKLY INFUSIONS FOR 2W WITH 1-W BREAK OR 4W WITH 2-W BREAK
     Route: 050
  2. TEMOZOLOMIDE [Suspect]
     Indication: BRAIN STEM GLIOMA
     Dosage: 75 MG/M2/DAY FROM MON-FRI CONTINUOUSLY
     Route: 048
  3. BEVACIZUMAB [Suspect]
     Indication: BRAIN STEM GLIOMA
     Route: 065

REACTIONS (2)
  - Neutropenia [Unknown]
  - Hypertension [Recovering/Resolving]
